FAERS Safety Report 5703059-4 (Version None)
Quarter: 2008Q2

REPORT INFORMATION
  Report Type: 
  Country: None (occurrence: None)
  Receive Date: 20080411
  Receipt Date: 20080407
  Transmission Date: 20081010
  Serious: Yes (Hospitalization, Other)
  Sender: FDA-Public Use
  Company Number: FR-BRISTOL-MYERS SQUIBB COMPANY-14142194

PATIENT
  Age: 76 Year
  Sex: Male

DRUGS (9)
  1. SINEMET [Interacting]
  2. REQUIP [Interacting]
  3. IMOVANE [Suspect]
  4. XANAX [Suspect]
  5. SEROPRAM [Suspect]
  6. MOTILIUM [Concomitant]
  7. ZOCOR [Concomitant]
  8. FORLAX [Concomitant]
  9. NEXIUM [Concomitant]

REACTIONS (10)
  - ANAEMIA [None]
  - DISORIENTATION [None]
  - DRUG INTERACTION [None]
  - FALL [None]
  - HEAD INJURY [None]
  - HYPERTONIA [None]
  - MALAISE [None]
  - ORTHOSTATIC HYPOTENSION [None]
  - RENAL FAILURE ACUTE [None]
  - URINARY RETENTION [None]
